FAERS Safety Report 25767328 (Version 1)
Quarter: 2025Q3

REPORT INFORMATION
  Report Type: Spontaneous
  Country: JP (occurrence: JP)
  Receive Date: 20250905
  Receipt Date: 20250905
  Transmission Date: 20251020
  Serious: Yes (Death, Hospitalization, Other)
  Sender: AKEBIA THERAPEUTICS
  Company Number: JP-JT-EVA202502564AKEBIAP

PATIENT
  Sex: Male

DRUGS (1)
  1. FERRIC CITRATE ANHYDROUS [Suspect]
     Active Substance: FERRIC CITRATE ANHYDROUS
     Indication: Hyperphosphataemia
     Route: 048

REACTIONS (3)
  - Myocardial infarction [Fatal]
  - Immune thrombocytopenia [Recovered/Resolved]
  - Arteriosclerosis [Unknown]
